FAERS Safety Report 25246669 (Version 1)
Quarter: 2025Q2

REPORT INFORMATION
  Report Type: Spontaneous
  Country: US (occurrence: US)
  Receive Date: 20250428
  Receipt Date: 20250428
  Transmission Date: 20250717
  Serious: Yes (Hospitalization)
  Sender: AMGEN
  Company Number: US-AMGEN-USASP2025080631

PATIENT
  Age: 24 Year
  Sex: Male

DRUGS (1)
  1. RITUXIMAB [Suspect]
     Active Substance: RITUXIMAB
     Indication: Multiple sclerosis
     Route: 065

REACTIONS (4)
  - Bell^s palsy [Recovered/Resolved]
  - Mycoplasma test positive [Unknown]
  - Otitis media bacterial [Unknown]
  - Off label use [Unknown]
